FAERS Safety Report 7356471-4 (Version None)
Quarter: 2011Q1

REPORT INFORMATION
  Report Type: 
  Country: None (occurrence: None)
  Receive Date: 20110316
  Receipt Date: 20090818
  Transmission Date: 20110831
  Serious: Yes (Other)
  Sender: FDA-Public Use
  Company Number: PHHY2009DE67686

PATIENT
  Sex: Female

DRUGS (1)
  1. EXTAVIA [Suspect]
     Route: 058
     Dates: start: 20090720

REACTIONS (8)
  - MENTAL RETARDATION [None]
  - GAIT DISTURBANCE [None]
  - FALL [None]
  - ASTHENIA [None]
  - JOINT INJURY [None]
  - INSOMNIA [None]
  - CYSTITIS [None]
  - BALANCE DISORDER [None]
